FAERS Safety Report 15863722 (Version 2)
Quarter: 2019Q1

REPORT INFORMATION
  Report Type: Report from Study
  Country: IT (occurrence: IT)
  Receive Date: 20190124
  Receipt Date: 20190219
  Transmission Date: 20190417
  Serious: Yes (Other)
  Sender: FDA-Public Use
  Company Number: IT-JNJFOC-20190130258

PATIENT
  Age: 66 Year
  Sex: Female

DRUGS (2)
  1. YONDELIS [Suspect]
     Active Substance: TRABECTEDIN
     Indication: OVARIAN CANCER
     Dosage: CUMULATIVE DOSE TO FIRST REACTION WAS 1.5 MG
     Route: 042
     Dates: start: 20181013, end: 20181013
  2. CAELYX [Suspect]
     Active Substance: DOXORUBICIN HYDROCHLORIDE
     Indication: OVARIAN CANCER
     Dosage: CUMULATIVE DOSE TO FIRST REACTION WAS 40 MG
     Route: 042
     Dates: start: 20181013, end: 20181013

REACTIONS (4)
  - Nausea [Recovering/Resolving]
  - Pyrexia [Recovering/Resolving]
  - Dyspepsia [Recovering/Resolving]
  - Neutropenia [Recovering/Resolving]

NARRATIVE: CASE EVENT DATE: 20181107
